FAERS Safety Report 9287639 (Version 2)
Quarter: 2013Q2

REPORT INFORMATION
  Report Type: Spontaneous
  Country: IL (occurrence: IL)
  Receive Date: 20130514
  Receipt Date: 20130520
  Transmission Date: 20140414
  Serious: Yes (Hospitalization, Other)
  Sender: FDA-Public Use
  Company Number: PHHY2013IL046889

PATIENT
  Age: 54 Year
  Sex: Female

DRUGS (2)
  1. CERTICAN [Suspect]
     Indication: LIVER TRANSPLANT
     Dosage: 0.75 UNK, BID
     Route: 048
  2. CERTICAN [Suspect]
     Dosage: 2 MG, BID
     Route: 048
     Dates: start: 20090309, end: 201304

REACTIONS (5)
  - Renal impairment [Not Recovered/Not Resolved]
  - Hepatic enzyme increased [Recovering/Resolving]
  - Crohn^s disease [Unknown]
  - Hypomagnesaemia [Unknown]
  - Diarrhoea [Recovering/Resolving]
